FAERS Safety Report 5278718-0 (Version None)
Quarter: 2007Q1

REPORT INFORMATION
  Report Type: 
  Country: None (occurrence: None)
  Receive Date: 20070321
  Receipt Date: 20070305
  Transmission Date: 20070707
  Serious: Yes (Death)
  Sender: FDA-Public Use
  Company Number: 238450

PATIENT
  Age: 49 Year
  Sex: Male
  Weight: 94 kg

DRUGS (11)
  1. MABTHERA(RITUXIMAB) CONC FOR SOLUTION FOR INFUSION [Suspect]
     Indication: DIFFUSE LARGE B-CELL LYMPHOMA
     Dosage: 100 MG, INTRAVENOUS
     Route: 042
     Dates: start: 20070221, end: 20070221
  2. MORPHINE SULFATE [Concomitant]
  3. CORTISONE (CORTISONE ACETATE) [Concomitant]
  4. ALLOPURINOL [Concomitant]
  5. LAMIVUDINE [Concomitant]
  6. CEFTRIAXONE [Concomitant]
  7. UNSPECIFIED DRUG (GENERIC COMPONENT (S) NOT KNOWN) [Concomitant]
  8. EPINEPHRINE [Concomitant]
  9. HYDROCORTISONE SODIUM SUCCINATE [Concomitant]
  10. METHYLPREDNISOLONE [Concomitant]
  11. DIMETHINDENE MALEATE (DIMETHINDENE MALEATE) [Concomitant]

REACTIONS (2)
  - CONDITION AGGRAVATED [None]
  - RENAL FAILURE [None]
